FAERS Safety Report 4621925-8 (Version None)
Quarter: 2005Q1

REPORT INFORMATION
  Report Type: 
  Country: None (occurrence: None)
  Receive Date: 20050329
  Receipt Date: 20050321
  Transmission Date: 20050727
  Serious: Yes (Other)
  Sender: FDA-Public Use
  Company Number: PHEH2005US03440

PATIENT
  Age: 58 Year
  Sex: Female
  Weight: 134 kg

DRUGS (1)
  1. DIOVAN HCT [Suspect]
     Indication: HYPERTENSION
     Dosage: 80/12.5MG, QD
     Route: 048
     Dates: start: 20050224, end: 20050301

REACTIONS (2)
  - FATIGUE [None]
  - LETHARGY [None]
